FAERS Safety Report 11001686 (Version 2)
Quarter: 2015Q2

REPORT INFORMATION
  Report Type: Report from Study
  Country: DE (occurrence: DE)
  Receive Date: 20150408
  Receipt Date: 20150515
  Transmission Date: 20150821
  Serious: Yes (Hospitalization, Other)
  Sender: FDA-Public Use
  Company Number: PHHY2014DE139871

PATIENT
  Sex: Male
  Weight: 69 kg

DRUGS (11)
  1. METOHEXAL COMP [Concomitant]
     Active Substance: METOPROLOL SUCCINATE
     Indication: HYPERTENSION
     Dosage: 100/12.5 COMP
     Route: 065
  2. SALBUHEXAL [Suspect]
     Active Substance: ALBUTEROL
     Dosage: PRN
     Dates: start: 20130128
  3. VIANI [Concomitant]
     Active Substance: FLUTICASONE PROPIONATE\SALMETEROL XINAFOATE
     Indication: CHRONIC OBSTRUCTIVE PULMONARY DISEASE
     Dosage: 1 DF (100UG/500UG), QD
     Route: 055
     Dates: start: 20130128
  4. VIANI [Concomitant]
     Active Substance: FLUTICASONE PROPIONATE\SALMETEROL XINAFOATE
     Dosage: 1 DF (50 ?G/250 ?G), QD
     Route: 065
  5. GLYCOPYRRONIUM BROMIDE [Suspect]
     Active Substance: GLYCOPYRRONIUM
     Indication: CHRONIC OBSTRUCTIVE PULMONARY DISEASE
     Dosage: 44 UG, QD
     Route: 055
     Dates: start: 20130128
  6. LISIHEXAL [Concomitant]
     Indication: HYPERTENSION
     Dosage: 5 MG, QD
     Route: 065
  7. ATORVASTATIN [Concomitant]
     Active Substance: ATORVASTATIN
     Indication: HYPERCHOLESTEROLAEMIA
     Dosage: 10 MG, QD
     Route: 065
  8. ATORVASTATIN [Concomitant]
     Active Substance: ATORVASTATIN
     Indication: CARDIOVASCULAR EVENT PROPHYLAXIS
  9. SALBUHEXAL [Suspect]
     Active Substance: ALBUTEROL
     Indication: CHRONIC OBSTRUCTIVE PULMONARY DISEASE
     Dosage: 100 UG, PRN
     Route: 065
     Dates: start: 20130117
  10. FALITHROM [Concomitant]
     Active Substance: PHENPROCOUMON
     Indication: ANTICOAGULANT THERAPY
     Dosage: 100 OT, ACCORDING TO QUICK
     Route: 065
     Dates: end: 20150116
  11. FLUVASTATIN AL [Concomitant]
     Indication: HYPERCHOLESTEROLAEMIA
     Dosage: 80 MG, UNK
     Route: 065

REACTIONS (9)
  - Chronic obstructive pulmonary disease [Recovered/Resolved]
  - Dyspnoea [Not Recovered/Not Resolved]
  - Pain [Recovering/Resolving]
  - Pneumonia [Recovered/Resolved]
  - Exercise tolerance decreased [Not Recovered/Not Resolved]
  - Bronchial carcinoma [Recovered/Resolved]
  - Diabetes mellitus [Recovering/Resolving]
  - Wheezing [Not Recovered/Not Resolved]
  - Grunting [Not Recovered/Not Resolved]

NARRATIVE: CASE EVENT DATE: 201301
